FAERS Safety Report 4330140-7 (Version None)
Quarter: 2004Q2

REPORT INFORMATION
  Report Type: 
  Country: None (occurrence: None)
  Receive Date: 20040402
  Receipt Date: 20040326
  Transmission Date: 20050107
  Serious: Yes (Hospitalization)
  Sender: FDA-Public Use
  Company Number: PHRM2004FR01382

PATIENT
  Age: 24 Hour

DRUGS (3)
  1. TEGRETOL [Suspect]
     Dosage: 400 MG, UNK
     Route: 064
  2. TERALITHE [Suspect]
     Dosage: 400 MG, UNK
     Route: 064
  3. VITAMIN D [Concomitant]
     Route: 064

REACTIONS (4)
  - AGITATION NEONATAL [None]
  - CAESAREAN SECTION [None]
  - DRUG EXPOSURE DURING PREGNANCY [None]
  - IRRITABILITY [None]
